FAERS Safety Report 4376000-7 (Version None)
Quarter: 2004Q2

REPORT INFORMATION
  Report Type: 
  Country: None (occurrence: None)
  Receive Date: 20040609
  Receipt Date: 20040609
  Transmission Date: 20050107
  Serious: Yes (Hospitalization)
  Sender: FDA-Public Use
  Company Number: None

PATIENT
  Age: 71 Year
  Sex: Male
  Weight: 65 kg

DRUGS (2)
  1. DECETAXEL [Suspect]
     Indication: NON-SMALL CELL LUNG CANCER
     Dosage: 137 MG Q 3 WEEKS IV
     Route: 042
     Dates: start: 20040512, end: 20040512
  2. IRESSA [Suspect]
     Indication: NON-SMALL CELL LUNG CANCER
     Dosage: 250 MG QD  ORAL
     Route: 048
     Dates: start: 20040512, end: 20040606

REACTIONS (1)
  - PULMONARY EMBOLISM [None]
